FAERS Safety Report 17370493 (Version 1)
Quarter: 2020Q1

REPORT INFORMATION
  Report Type: Spontaneous
  Country: US (occurrence: US)
  Receive Date: 20200121
  Receipt Date: 20200121
  Transmission Date: 20200409
  Serious: No
  Sender: FDA-Public Use
  Company Number: None

PATIENT
  Sex: Male

DRUGS (1)
  1. CLONIDINE. [Suspect]
     Active Substance: CLONIDINE

REACTIONS (8)
  - Femur fracture [None]
  - Spinal fracture [None]
  - Sedation complication [None]
  - Product quality issue [None]
  - Renal disorder [None]
  - Victim of crime [None]
  - Upper limb fracture [None]
  - Product measured potency issue [None]
